FAERS Safety Report 21111191 (Version 1)
Quarter: 2022Q3

REPORT INFORMATION
  Report Type: Spontaneous
  Country: US (occurrence: None)
  Receive Date: 20220720
  Receipt Date: 20220720
  Transmission Date: 20221027
  Serious: Yes (Other)
  Sender: FDA-Public Use
  Company Number: None

PATIENT
  Age: 24 Year
  Sex: Female

DRUGS (1)
  1. SKYRIZI [Suspect]
     Active Substance: RISANKIZUMAB-RZAA
     Indication: Psoriasis
     Dosage: OTHER FREQUENCY : Q 3 MONTHS;?
     Route: 058
     Dates: start: 20210315

REACTIONS (3)
  - Arthralgia [None]
  - Pyrexia [None]
  - Mobility decreased [None]

NARRATIVE: CASE EVENT DATE: 20211016
